FAERS Safety Report 9022343 (Version 2)
Quarter: 2013Q1

REPORT INFORMATION
  Report Type: Spontaneous
  Country: BR (occurrence: BR)
  Receive Date: 20130118
  Receipt Date: 20130327
  Transmission Date: 20140127
  Serious: Yes (Other)
  Sender: FDA-Public Use
  Company Number: PHHY2013BR003821

PATIENT
  Sex: Female
  Weight: 135 kg

DRUGS (3)
  1. DIOVAN TRIPLE [Suspect]
     Indication: HYPERTENSION
     Dosage: 2 DF (160/5/12.5MG), DAILY
     Route: 048
  2. GLIFAGE [Concomitant]
     Indication: DIABETES MELLITUS
     Dosage: 750 MG, DAILY
     Route: 048
  3. DIAMICRON MR [Concomitant]
     Indication: DIABETES MELLITUS
     Dosage: 30 MG, DAILY
     Route: 048

REACTIONS (4)
  - Cerebrovascular accident [Recovering/Resolving]
  - Muscular weakness [Not Recovered/Not Resolved]
  - Speech disorder [Not Recovered/Not Resolved]
  - Pollakiuria [Not Recovered/Not Resolved]
